FAERS Safety Report 5897707-6 (Version None)
Quarter: 2008Q3

REPORT INFORMATION
  Report Type: 
  Country: None (occurrence: None)
  Receive Date: 20080924
  Receipt Date: 20080924
  Transmission Date: 20090109
  Serious: Yes (Other)
  Sender: FDA-Public Use
  Company Number: None

PATIENT
  Age: 31 Year
  Sex: Female
  Weight: 63.5 kg

DRUGS (1)
  1. FERRLECIT [Suspect]
     Indication: VOMITING IN PREGNANCY
     Dosage: 125 MG DAILY IV DRIP
     Route: 041
     Dates: start: 20080923, end: 20080923

REACTIONS (1)
  - BACK PAIN [None]
